FAERS Safety Report 7385769-9 (Version None)
Quarter: 2011Q1

REPORT INFORMATION
  Report Type: 
  Country: None (occurrence: None)
  Receive Date: 20110331
  Receipt Date: 20091122
  Transmission Date: 20110831
  Serious: Yes (Hospitalization, Other)
  Sender: FDA-Public Use
  Company Number: US-BAYER-201039731NA

PATIENT
  Sex: Female
  Weight: 84 kg

DRUGS (37)
  1. TRASYLOL [Suspect]
     Indication: CORONARY ARTERY BYPASS
     Route: 042
     Dates: start: 19991115, end: 19991115
  2. NORVASC [Concomitant]
     Dosage: 10 MG, QD
     Route: 048
  3. LABETALOL [Concomitant]
     Dosage: 100 MG, QD
     Route: 048
  4. ADVIL LIQUI-GELS [Concomitant]
     Dosage: UNK
     Dates: start: 19970101
  5. NORMOSOL [Concomitant]
     Indication: CARDIOPULMONARY BYPASS
     Dosage: 200 ML, UNK
     Dates: start: 19991115
  6. KETAMINE HCL [Concomitant]
     Dosage: 200 MG, UNK
     Dates: start: 19991115
  7. NITROGLYCERIN [Concomitant]
     Dosage: UNK
     Route: 042
     Dates: start: 19991108, end: 19991115
  8. LIPITOR [Concomitant]
     Dosage: 10 MG, UNK
     Dates: start: 20090101
  9. ALBUMIN (HUMAN) [Concomitant]
     Indication: CARDIOPULMONARY BYPASS
     Dosage: 100 ML, UNK
     Dates: start: 19991115
  10. ROCURONIUM [Concomitant]
     Dosage: 100 MG, UNK
     Route: 042
     Dates: start: 19991115
  11. DURACLON [Concomitant]
     Dosage: UNK
     Route: 008
     Dates: start: 19991115
  12. HEPARIN SODIUM [Concomitant]
     Dosage: 3000 U, UNK
     Route: 042
     Dates: start: 19991106
  13. VANCOMYCIN [Concomitant]
     Indication: PREOPERATIVE CARE
     Dosage: 1 G, UNK
     Route: 042
     Dates: start: 19991115, end: 19991116
  14. ZOCOR [Concomitant]
     Dosage: 20 MG, HS
     Route: 048
     Dates: start: 19991106, end: 19991115
  15. SODIUM BICARBONATE [Concomitant]
     Indication: CARDIOPULMONARY BYPASS
     Dosage: 25 MEQ, UNK
     Dates: start: 19991115
  16. ALBUMIN (HUMAN) [Concomitant]
     Dosage: 100 ML, UNK
  17. PAPAVERINE [Concomitant]
     Indication: CARDIOPULMONARY BYPASS
     Dosage: 50 MG, UNK
     Dates: start: 19991115
  18. MIDAZOLAM HCL [Concomitant]
     Dosage: 10 MG, UNK
     Route: 042
     Dates: start: 19991115
  19. SUFENTA PRESERVATIVE FREE [Concomitant]
     Dosage: UNK
     Route: 042
     Dates: start: 19991115
  20. PROTAMINE SULFATE [Concomitant]
     Dosage: 270 MG, UNK
     Dates: start: 19991115
  21. SOLU-MEDROL [Concomitant]
     Indication: SURGERY
     Dosage: 200 MG, UNK
     Route: 042
  22. SUFENTA PRESERVATIVE FREE [Concomitant]
     Dosage: 2 UNK, UNK
     Route: 008
     Dates: start: 19991115
  23. LASIX [Concomitant]
     Indication: CATHETERISATION CARDIAC
     Dosage: 20 MG, UNK
     Route: 042
     Dates: start: 19991108
  24. IMDUR [Concomitant]
     Dosage: 90 MG, QD
     Route: 048
     Dates: start: 19991109, end: 19991115
  25. INDERAL [Concomitant]
     Indication: CARDIOPULMONARY BYPASS
     Dosage: 1.0 MG, UNK
     Dates: start: 19991115
  26. MANNITOL [Concomitant]
     Indication: CARDIOPULMONARY BYPASS
     Dosage: 25 G, UNK
     Route: 042
     Dates: start: 19991115
  27. THAM [Concomitant]
     Dosage: 150 ML, UNK
     Dates: start: 19991115
  28. CALCIUM [Concomitant]
     Dosage: 1 G, UNK
     Route: 042
     Dates: start: 19991115
  29. CARDIOPLEGIA [Concomitant]
     Indication: CARDIOPULMONARY BYPASS
     Dosage: 1400 ML, UNK
     Dates: start: 19991115
  30. CONTRAST MEDIA [Concomitant]
     Dosage: 75 ML, UNK
     Dates: start: 19991108
  31. NITROGLYCERIN [Concomitant]
     Dosage: 0.4 MG, PRN
     Route: 060
  32. K DUR [Concomitant]
     Dosage: 20 MEQ, UNK
     Route: 048
     Dates: start: 19991107
  33. ASPIRIN [Concomitant]
     Dosage: 325 MG, QD
     Route: 048
  34. QUININE SULFATE [Concomitant]
     Dosage: UNK
     Route: 048
     Dates: end: 19991115
  35. EPOGEN [Concomitant]
     Dosage: UNK
     Dates: start: 19991112
  36. HEPARIN SODIUM [Concomitant]
     Indication: CARDIOPULMONARY BYPASS
     Dosage: 45000 U, UNK
     Dates: start: 19991115
  37. MARCAINE [Concomitant]
     Dosage: .10 UNK, UNK
     Route: 008
     Dates: start: 19991115

REACTIONS (12)
  - RENAL FAILURE [None]
  - UNEVALUABLE EVENT [None]
  - RENAL IMPAIRMENT [None]
  - INJURY [None]
  - CEREBROVASCULAR ACCIDENT [None]
  - PANCREATITIS [None]
  - EMOTIONAL DISTRESS [None]
  - FEAR [None]
  - PAIN [None]
  - RENAL INJURY [None]
  - ANXIETY [None]
  - STRESS [None]
